FAERS Safety Report 7851943-8 (Version None)
Quarter: 2011Q4

REPORT INFORMATION
  Report Type: 
  Country: None (occurrence: None)
  Receive Date: 20111026
  Receipt Date: 20111013
  Transmission Date: 20120403
  Serious: Yes (Other)
  Sender: FDA-Public Use
  Company Number: DE-ELI_LILLY_AND_COMPANY-DE201110003331

PATIENT
  Age: 20 Year
  Sex: Female

DRUGS (3)
  1. OLANZAPINE [Suspect]
     Dosage: 300 MG, UNKNOWN
     Route: 030
     Dates: start: 20110912
  2. OLANZAPINE [Suspect]
     Dosage: 405 MG, UNKNOWN
     Route: 030
     Dates: start: 20111010
  3. OLANZAPINE [Suspect]
     Dosage: 15-20 MG, UNKNOWN
     Route: 048

REACTIONS (3)
  - MEDICATION ERROR [None]
  - BLOOD PRESSURE DECREASED [None]
  - SEDATION [None]
